FAERS Safety Report 8374037-4 (Version None)
Quarter: 2012Q2

REPORT INFORMATION
  Report Type: 
  Country: None (occurrence: None)
  Receive Date: 20120521
  Receipt Date: 20120516
  Transmission Date: 20120825
  Serious: No
  Sender: FDA-Public Use
  Company Number: US-PFIZER INC-2012099494

PATIENT
  Sex: Female
  Weight: 97.959 kg

DRUGS (10)
  1. COMPAZINE [Concomitant]
     Dosage: UNK, AS NEEDED
  2. TYLENOL [Concomitant]
     Dosage: UNK, AS NEEDED
  3. SUTENT [Suspect]
     Indication: METASTATIC RENAL CELL CARCINOMA
     Dosage: 50 MG, 1 CAPSULE DAILY, CYCLE 4 WEEKS ON AND 2 WEEKS OFF
     Dates: start: 20120416, end: 20120513
  4. OXYBUTYNIN [Concomitant]
  5. ZOLPIDEM [Concomitant]
     Dosage: UNK
  6. CITALOPRAM [Concomitant]
     Dosage: UNK
  7. CHONDROITIN/GLUCOSAMINE [Concomitant]
  8. LEVOTHYROXINE [Concomitant]
     Dosage: UNK
  9. LOVASTATIN [Concomitant]
  10. PERCOCET [Concomitant]
     Dosage: UNK, AS NEEDED

REACTIONS (11)
  - FATIGUE [None]
  - DIARRHOEA [None]
  - CHILLS [None]
  - NASOPHARYNGITIS [None]
  - DYSGEUSIA [None]
  - FEELING HOT [None]
  - WEIGHT DECREASED [None]
  - ORAL PAIN [None]
  - NAUSEA [None]
  - TONGUE ULCERATION [None]
  - ECCHYMOSIS [None]
